FAERS Safety Report 23816598 (Version 2)
Quarter: 2024Q3

REPORT INFORMATION
  Report Type: Spontaneous
  Country: GR (occurrence: GR)
  Receive Date: 20240503
  Receipt Date: 20240711
  Transmission Date: 20241017
  Serious: Yes (Hospitalization, Other)
  Sender: BRISTOL MYERS SQUIBB
  Company Number: GR-MYLANLABS-2024M1035381

PATIENT
  Age: 37 Year
  Sex: Male

DRUGS (8)
  1. LENALIDOMIDE [Suspect]
     Active Substance: LENALIDOMIDE
     Indication: Plasma cell myeloma
     Dosage: UNK
  2. LENALIDOMIDE [Suspect]
     Active Substance: LENALIDOMIDE
     Indication: Haemophagocytic lymphohistiocytosis
  3. DEXAMETHASONE [Suspect]
     Active Substance: DEXAMETHASONE
     Indication: Plasma cell myeloma
     Dosage: UNK
  4. DEXAMETHASONE [Suspect]
     Active Substance: DEXAMETHASONE
     Indication: Haemophagocytic lymphohistiocytosis
  5. DARZALEX [Suspect]
     Active Substance: DARATUMUMAB
     Indication: Plasma cell myeloma
     Dosage: UNK
  6. DARZALEX [Suspect]
     Active Substance: DARATUMUMAB
     Indication: Haemophagocytic lymphohistiocytosis
  7. VELCADE [Suspect]
     Active Substance: BORTEZOMIB
     Indication: Plasma cell myeloma
     Dosage: UNK
  8. VELCADE [Suspect]
     Active Substance: BORTEZOMIB
     Indication: Haemophagocytic lymphohistiocytosis

REACTIONS (11)
  - Communication disorder [Recovered/Resolved]
  - Wheezing [Recovered/Resolved]
  - Multiple organ dysfunction syndrome [Recovered/Resolved]
  - Chills [Recovered/Resolved]
  - Bacteraemia [Recovered/Resolved]
  - Laryngitis bacterial [Recovered/Resolved]
  - Pyrexia [Recovered/Resolved]
  - Dysphonia [Recovered/Resolved]
  - Haemophagocytic lymphohistiocytosis [Recovered/Resolved]
  - Neutropenia [Recovered/Resolved]
  - Acinetobacter infection [Unknown]

NARRATIVE: CASE EVENT DATE: 20220101
